FAERS Safety Report 26171493 (Version 1)
Quarter: 2025Q4

REPORT INFORMATION
  Report Type: Spontaneous
  Country: US (occurrence: US)
  Receive Date: 20251217
  Receipt Date: 20251217
  Transmission Date: 20260118
  Serious: No
  Sender: BAYER HEALTHCARE PHARMACEUTICALS INC.
  Company Number: US-BAYER-2025A165308

PATIENT
  Age: 71 Year
  Sex: Male

DRUGS (2)
  1. NUBEQA [Suspect]
     Active Substance: DAROLUTAMIDE
     Dosage: 600 MG, BID
     Dates: start: 202506, end: 20251215
  2. ORGOVYX [Suspect]
     Active Substance: RELUGOLIX

REACTIONS (7)
  - Hot flush [None]
  - Flushing [None]
  - Erythema [None]
  - Constipation [None]
  - Urinary incontinence [None]
  - Pollakiuria [None]
  - Dry skin [None]

NARRATIVE: CASE EVENT DATE: 20250601
